FAERS Safety Report 15777101 (Version 1)
Quarter: 2018Q4

REPORT INFORMATION
  Report Type: Spontaneous
  Country: US (occurrence: US)
  Receive Date: 20181211
  Receipt Date: 20181211
  Transmission Date: 20190205
  Serious: Yes (Hospitalization, Other)
  Sender: FDA-Public Use
  Company Number: None

PATIENT
  Age: 42 Year
  Sex: Female
  Weight: 54.45 kg

DRUGS (7)
  1. PORCET [Concomitant]
  2. LEVOFLOXACIN. [Suspect]
     Active Substance: LEVOFLOXACIN
     Indication: BACTERIAL INFECTION
     Route: 042
  3. SYNDRIOD [Concomitant]
  4. VALUMN [Concomitant]
  5. VD2 [Concomitant]
  6. METRONIDAZOLE. [Suspect]
     Active Substance: METRONIDAZOLE
  7. TYLONAL [Concomitant]

REACTIONS (4)
  - Musculoskeletal pain [None]
  - Condition aggravated [None]
  - Abdominal pain upper [None]
  - Muscle spasms [None]

NARRATIVE: CASE EVENT DATE: 20181106
